FAERS Safety Report 22065260 (Version 1)
Quarter: 2023Q1

REPORT INFORMATION
  Report Type: Spontaneous
  Country: US (occurrence: US)
  Receive Date: 20230306
  Receipt Date: 20230306
  Transmission Date: 20230417
  Serious: No
  Sender: FDA-Public Use
  Company Number: US-SA-SAC20230302001258

PATIENT
  Age: 53 Year
  Sex: Female

DRUGS (1)
  1. DUPIXENT [Suspect]
     Active Substance: DUPILUMAB
     Indication: Dermatitis
     Dosage: 300 MG, QOW
     Route: 065
     Dates: start: 202001

REACTIONS (4)
  - Food allergy [Unknown]
  - Dermatitis [Unknown]
  - Hypersensitivity [Unknown]
  - Product use in unapproved indication [Unknown]
